FAERS Safety Report 15585128 (Version 1)
Quarter: 2018Q4

REPORT INFORMATION
  Report Type: Spontaneous
  Country: JP (occurrence: JP)
  Receive Date: 20181102
  Receipt Date: 20181102
  Transmission Date: 20190205
  Serious: Yes (Hospitalization, Other)
  Sender: FDA-Public Use
  Company Number: JP-BAYER-2018-199686

PATIENT
  Age: 83 Year
  Sex: Male

DRUGS (2)
  1. NEXAVAR [Suspect]
     Active Substance: SORAFENIB
     Indication: RENAL CELL CARCINOMA
     Dosage: 300 MG, BID
     Route: 048
     Dates: start: 20080601, end: 201207
  2. NEXAVAR [Suspect]
     Active Substance: SORAFENIB
     Indication: RENAL CELL CARCINOMA
     Dosage: DAILY DOSE 200 MG
     Route: 048
     Dates: start: 201209, end: 20140401

REACTIONS (9)
  - Renal impairment [Recovering/Resolving]
  - Blood pressure increased [Unknown]
  - Cerebral infarction [Recovering/Resolving]
  - Palmar-plantar erythrodysaesthesia syndrome [Unknown]
  - Hypothyroidism [Unknown]
  - Diarrhoea [Unknown]
  - Metastases to central nervous system [None]
  - Metastases to lymph nodes [None]
  - Platelet count decreased [Unknown]

NARRATIVE: CASE EVENT DATE: 20140401
